FAERS Safety Report 22188331 (Version 1)
Quarter: 2023Q2

REPORT INFORMATION
  Report Type: Spontaneous
  Country: US (occurrence: US)
  Receive Date: 20230408
  Receipt Date: 20230408
  Transmission Date: 20230721
  Serious: Yes (Hospitalization, Other)
  Sender: FDA-Public Use
  Company Number: US-drreddys-LIT/USA/23/0163212

PATIENT
  Age: 58 Year
  Sex: Female

DRUGS (17)
  1. LAMOTRIGINE [Suspect]
     Active Substance: LAMOTRIGINE
     Indication: Mood swings
  2. LAMOTRIGINE [Suspect]
     Active Substance: LAMOTRIGINE
  3. LAMOTRIGINE [Suspect]
     Active Substance: LAMOTRIGINE
     Dosage: RESTARTED SIX MONTHS LATER
  4. LAMOTRIGINE [Suspect]
     Active Substance: LAMOTRIGINE
     Dosage: TRIALED
  5. DIVALPROEX SODIUM [Suspect]
     Active Substance: DIVALPROEX SODIUM
     Indication: Depression
  6. RISPERIDONE [Suspect]
     Active Substance: RISPERIDONE
     Indication: Depression
  7. QUETIAPINE FUMARATE [Suspect]
     Active Substance: QUETIAPINE FUMARATE
     Indication: Depression
  8. ARIPIPRAZOLE [Suspect]
     Active Substance: ARIPIPRAZOLE
     Indication: Depression
  9. ARIPIPRAZOLE [Suspect]
     Active Substance: ARIPIPRAZOLE
     Indication: Mood swings
  10. BUPROPION [Suspect]
     Active Substance: BUPROPION
     Indication: Mood swings
  11. BUPROPION [Suspect]
     Active Substance: BUPROPION
  12. DULOXETINE [Suspect]
     Active Substance: DULOXETINE
     Indication: Mood swings
  13. DULOXETINE [Suspect]
     Active Substance: DULOXETINE
  14. GABAPENTIN [Suspect]
     Active Substance: GABAPENTIN
     Indication: Mood swings
  15. TRAZODONE [Suspect]
     Active Substance: TRAZODONE HYDROCHLORIDE
     Indication: Mood swings
     Dosage: AT BEDTIME AS NEEDED
  16. LITHIUM [Suspect]
     Active Substance: LITHIUM
     Indication: Mood swings
     Dosage: TRIALED FOR 6 WEEKS
  17. VILAZODONE [Suspect]
     Active Substance: VILAZODONE
     Indication: Mood swings

REACTIONS (3)
  - Chorea [Recovering/Resolving]
  - Tardive dyskinesia [Recovered/Resolved]
  - Product use in unapproved indication [Unknown]
